FAERS Safety Report 24659002 (Version 1)
Quarter: 2024Q4

REPORT INFORMATION
  Report Type: Spontaneous
  Country: US (occurrence: None)
  Receive Date: 20241125
  Receipt Date: 20241125
  Transmission Date: 20250114
  Serious: Yes (Other)
  Sender: Public
  Company Number: None

PATIENT
  Age: 48 Year
  Sex: Female
  Weight: 79.38 kg

DRUGS (1)
  1. LEVOTHYROXINE [Suspect]
     Active Substance: LEVOTHYROXINE
     Indication: Hypothyroidism
     Dosage: 125 MCG DAILY ORAL ?
     Route: 048
     Dates: start: 20190901, end: 20190901

REACTIONS (4)
  - Nausea [None]
  - Dizziness [None]
  - Gait disturbance [None]
  - Throat tightness [None]
